FAERS Safety Report 7795341-4 (Version None)
Quarter: 2011Q4

REPORT INFORMATION
  Report Type: 
  Country: None (occurrence: None)
  Receive Date: 20111004
  Receipt Date: 20110929
  Transmission Date: 20120403
  Serious: Yes (Death, Hospitalization)
  Sender: FDA-Public Use
  Company Number: PHEH2011US05131

PATIENT
  Sex: Female

DRUGS (9)
  1. GLEEVEC [Suspect]
     Indication: CHRONIC MYELOID LEUKAEMIA (IN REMISSION)
     Dosage: 200 MG, DAILY
     Route: 048
  2. LASIX [Concomitant]
  3. VANCOMYCIN [Concomitant]
  4. HEPARIN [Suspect]
     Dosage: UNK
  5. DIGOXIN [Concomitant]
  6. COREG [Concomitant]
  7. DOPAMINE HCL [Concomitant]
  8. PEPCID [Concomitant]
  9. ZEMPLAR [Concomitant]

REACTIONS (13)
  - DYSPNOEA [None]
  - SEPSIS [None]
  - FATIGUE [None]
  - INTERNATIONAL NORMALISED RATIO INCREASED [None]
  - HEART RATE INCREASED [None]
  - VASODILATATION [None]
  - RENAL FAILURE [None]
  - HEPARIN-INDUCED THROMBOCYTOPENIA [None]
  - BLOOD CREATININE INCREASED [None]
  - HYPOTENSION [None]
  - OEDEMA PERIPHERAL [None]
  - BLOOD UREA INCREASED [None]
  - DEATH [None]
